FAERS Safety Report 18034109 (Version 1)
Quarter: 2020Q3

REPORT INFORMATION
  Report Type: Spontaneous
  Country: GB (occurrence: GB)
  Receive Date: 20200716
  Receipt Date: 20200716
  Transmission Date: 20201103
  Serious: Yes (Other)
  Sender: FDA-Public Use
  Company Number: GB-MYLANLABS-2020M1063438

PATIENT
  Age: 64 Year
  Sex: Female
  Weight: 78 kg

DRUGS (2)
  1. MIRTAZAPINE. [Suspect]
     Active Substance: MIRTAZAPINE
     Indication: DEPRESSION
     Dosage: STARTED AT 15 MG, INCREASED IN STAGES TO 45MG IN FEB 2019
     Route: 048
     Dates: start: 20180927
  2. MIRTAZAPINE. [Suspect]
     Active Substance: MIRTAZAPINE
     Dosage: STARTED AT 15 MG, INCREASED IN STAGES TO 45MG IN FEB 2019
     Route: 048
     Dates: start: 201902, end: 20200614

REACTIONS (1)
  - Restless legs syndrome [Recovered/Resolved]
